FAERS Safety Report 7271091-8 (Version None)
Quarter: 2011Q1

REPORT INFORMATION
  Report Type: 
  Country: None (occurrence: None)
  Receive Date: 20110202
  Receipt Date: 20110124
  Transmission Date: 20110831
  Serious: Yes (Hospitalization)
  Sender: FDA-Public Use
  Company Number: US-ASTRAZENECA-2011SE03926

PATIENT
  Age: 20 Year
  Sex: Male

DRUGS (3)
  1. SEROQUEL [Suspect]
     Indication: BIPOLAR DISORDER
     Route: 048
     Dates: start: 20100601
  2. LEXAPRO [Concomitant]
     Dates: start: 20100101
  3. SEROQUEL [Suspect]
     Route: 048
     Dates: end: 20101001

REACTIONS (4)
  - ABASIA [None]
  - PYREXIA [None]
  - BLOOD PRESSURE DECREASED [None]
  - CONFUSIONAL STATE [None]
